FAERS Safety Report 5887794-3 (Version None)
Quarter: 2008Q3

REPORT INFORMATION
  Report Type: 
  Country: None (occurrence: None)
  Receive Date: 20080917
  Receipt Date: 20080917
  Transmission Date: 20090109
  Serious: No
  Sender: FDA-Public Use
  Company Number: None

PATIENT
  Age: 59 Year
  Sex: Female
  Weight: 76.6579 kg

DRUGS (1)
  1. DOXYCYCLINE 100MG WEST-WARD INC. [Suspect]
     Indication: URINARY TRACT INFECTION
     Dosage: 100MG TWICE A DAY PO
     Route: 048
     Dates: start: 20080913, end: 20080917

REACTIONS (7)
  - ABDOMINAL PAIN UPPER [None]
  - ASTHENIA [None]
  - HEADACHE [None]
  - MENTAL STATUS CHANGES [None]
  - NAUSEA [None]
  - PYREXIA [None]
  - SPEECH DISORDER [None]
